FAERS Safety Report 20923672 (Version 1)
Quarter: 2022Q2

REPORT INFORMATION
  Report Type: Spontaneous
  Country: GR (occurrence: GR)
  Receive Date: 20220607
  Receipt Date: 20220607
  Transmission Date: 20220721
  Serious: Yes (Other)
  Sender: FDA-Public Use
  Company Number: GR-ASTELLAS-2022US020388

PATIENT
  Age: 31 Year
  Sex: Female

DRUGS (3)
  1. XOSPATA [Suspect]
     Active Substance: GILTERITINIB
     Indication: Acute myeloid leukaemia
     Dosage: 120 MG (3X40 MG), ONCE DAILY
     Route: 065
     Dates: start: 202112, end: 202202
  2. XOSPATA [Suspect]
     Active Substance: GILTERITINIB
     Dosage: 120 MG (3X40 MG), ONCE DAILY
     Route: 065
     Dates: start: 202203
  3. VENETOCLAX [Suspect]
     Active Substance: VENETOCLAX
     Indication: Acute myeloid leukaemia
     Dosage: UNK UNK, UNKNOWN FREQ.
     Route: 065
     Dates: start: 202203

REACTIONS (3)
  - Acute graft versus host disease [Recovered/Resolved]
  - Product use issue [Unknown]
  - Off label use [Unknown]

NARRATIVE: CASE EVENT DATE: 20220301
